FAERS Safety Report 18120042 (Version 1)
Quarter: 2020Q3

REPORT INFORMATION
  Report Type: Report from Study
  Country: US (occurrence: US)
  Receive Date: 20200806
  Receipt Date: 20200806
  Transmission Date: 20201103
  Serious: No
  Sender: FDA-Public Use
  Company Number: US-IPSEN BIOPHARMACEUTICALS, INC.-2020-13722

PATIENT
  Age: 12 Year
  Sex: Male

DRUGS (1)
  1. INCRELEX [Suspect]
     Active Substance: MECASERMIN
     Indication: SEVERE PRIMARY INSULIN LIKE GROWTH FACTOR-1 DEFICIENCY
     Dosage: DOSE: NOT KNOWN
     Route: 058
     Dates: start: 201909, end: 202002

REACTIONS (2)
  - Blood glucose decreased [Unknown]
  - Migraine [Recovering/Resolving]

NARRATIVE: CASE EVENT DATE: 201910
